FAERS Safety Report 16644534 (Version 2)
Quarter: 2019Q3

REPORT INFORMATION
  Report Type: Spontaneous
  Country: DE (occurrence: DE)
  Receive Date: 20190729
  Receipt Date: 20190807
  Transmission Date: 20191004
  Serious: No
  Sender: FDA-Public Use
  Company Number: DE-ALLERGAN-1930456US

PATIENT
  Age: 59 Year
  Sex: Male

DRUGS (1)
  1. CARIPRAZINE HCL - BP [Suspect]
     Active Substance: CARIPRAZINE HYDROCHLORIDE
     Indication: PSYCHOTIC DISORDER
     Dosage: 3 MG, QD
     Route: 048
     Dates: start: 20190325, end: 20190426

REACTIONS (10)
  - Tremor [Recovered/Resolved]
  - Visual acuity reduced [Recovered/Resolved]
  - Extrapyramidal disorder [Recovered/Resolved]
  - Sinus tachycardia [Recovered/Resolved]
  - Face oedema [Recovered/Resolved]
  - Chills [Recovered/Resolved]
  - Akathisia [Recovered/Resolved]
  - Oedema peripheral [Recovered/Resolved]
  - Dysarthria [Recovered/Resolved]
  - Off label use [Unknown]

NARRATIVE: CASE EVENT DATE: 20190325
